FAERS Safety Report 12648172 (Version 1)
Quarter: 2016Q3

REPORT INFORMATION
  Report Type: Spontaneous
  Country: US (occurrence: None)
  Receive Date: 20160811
  Receipt Date: 20160811
  Transmission Date: 20161109
  Serious: Yes (Hospitalization)
  Sender: FDA-Public Use
  Company Number: None

PATIENT
  Age: 51 Year
  Sex: Male
  Weight: 112.7 kg

DRUGS (5)
  1. MERCAPTOPURINE. [Suspect]
     Active Substance: MERCAPTOPURINE
     Dates: end: 20160720
  2. CYCLOPHOSPHAMIDE. [Suspect]
     Active Substance: CYCLOPHOSPHAMIDE
     Dates: end: 20160707
  3. METHOTREXATE. [Suspect]
     Active Substance: METHOTREXATE
     Dates: end: 20160707
  4. ONCASPAR [Suspect]
     Active Substance: PEGASPARGASE
     Dosage: 3750 UNIT?
     Dates: end: 20160623
  5. CYTARABINE. [Suspect]
     Active Substance: CYTARABINE
     Dates: end: 20160717

REACTIONS (6)
  - Diarrhoea [None]
  - Chills [None]
  - Neutrophil count abnormal [None]
  - Vomiting [None]
  - Body temperature increased [None]
  - Nausea [None]

NARRATIVE: CASE EVENT DATE: 20160731
